FAERS Safety Report 15831257 (Version 1)
Quarter: 2019Q1

REPORT INFORMATION
  Report Type: Spontaneous
  Country: US (occurrence: US)
  Receive Date: 20190114
  Receipt Date: 20190114
  Transmission Date: 20190417
  Serious: Yes (Hospitalization)
  Sender: FDA-Public Use
  Company Number: None

PATIENT
  Age: 63 Year
  Sex: Male
  Weight: 84 kg

DRUGS (1)
  1. OMEPRAZOLE. [Suspect]
     Active Substance: OMEPRAZOLE
     Indication: GASTROOESOPHAGEAL REFLUX DISEASE
     Route: 048
     Dates: start: 20180816, end: 20181030

REACTIONS (6)
  - Anuria [None]
  - Azotaemia [None]
  - Paranoia [None]
  - Tubulointerstitial nephritis [None]
  - Disorientation [None]
  - Delirium [None]

NARRATIVE: CASE EVENT DATE: 20181024
